FAERS Safety Report 12675625 (Version 1)
Quarter: 2016Q3

REPORT INFORMATION
  Report Type: Spontaneous
  Country: US (occurrence: US)
  Receive Date: 20160823
  Receipt Date: 20160823
  Transmission Date: 20161109
  Serious: No
  Sender: FDA-Public Use
  Company Number: US-JAZZ-2016-US-006418

PATIENT
  Sex: Female

DRUGS (14)
  1. XYREM [Suspect]
     Active Substance: SODIUM OXYBATE
     Indication: CATAPLEXY
     Dosage: DOSE ADJUSTMENTS
     Route: 048
     Dates: start: 201210, end: 201212
  2. METROGEL-VAGINAL [Concomitant]
     Active Substance: METRONIDAZOLE
  3. XYREM [Suspect]
     Active Substance: SODIUM OXYBATE
     Dosage: 4.5 G, BID
     Route: 048
     Dates: start: 201212
  4. DEXTROAMPHETAMINE ER [Concomitant]
  5. XYREM [Suspect]
     Active Substance: SODIUM OXYBATE
     Indication: NARCOLEPSY
     Dosage: 1.25 G, BID
     Route: 048
     Dates: start: 201209, end: 201210
  6. IBUPROFEN. [Concomitant]
     Active Substance: IBUPROFEN
  7. EPIPEN [Concomitant]
     Active Substance: EPINEPHRINE
  8. FLONASE [Concomitant]
     Active Substance: FLUTICASONE PROPIONATE
  9. VITAMIN B12 [Concomitant]
     Active Substance: CYANOCOBALAMIN
  10. DEXTROAMPHETAMINE. [Concomitant]
     Active Substance: DEXTROAMPHETAMINE
  11. CALTRATE [Concomitant]
     Active Substance: CALCIUM CARBONATE
  12. MIRENA [Concomitant]
     Active Substance: LEVONORGESTREL
  13. VITAMIN D3 [Concomitant]
     Active Substance: CHOLECALCIFEROL
  14. METHYLPHENIDATE. [Concomitant]
     Active Substance: METHYLPHENIDATE

REACTIONS (1)
  - Seasonal allergy [Unknown]
